FAERS Safety Report 13257754 (Version 1)
Quarter: 2017Q1

REPORT INFORMATION
  Report Type: Report from Study
  Country: AT (occurrence: AT)
  Receive Date: 20170221
  Receipt Date: 20170221
  Transmission Date: 20170428
  Serious: Yes (Hospitalization)
  Sender: FDA-Public Use
  Company Number: AT-INCYTE CORPORATION-2016IN000294

PATIENT
  Age: 76 Year
  Sex: Male

DRUGS (5)
  1. PARKEMED [Concomitant]
     Active Substance: MEFENAMIC ACID
     Indication: PRODUCT USED FOR UNKNOWN INDICATION
     Route: 065
  2. PANTOPRAZOL [Concomitant]
     Active Substance: PANTOPRAZOLE SODIUM
     Indication: PRODUCT USED FOR UNKNOWN INDICATION
     Dosage: 40 MG, QD, FOR TWO WEEKS
     Route: 065
  3. XYZALL [Concomitant]
     Active Substance: LEVOCETIRIZINE DIHYDROCHLORIDE
     Indication: PRURITUS
     Dosage: 5 MG, QD FOR SOME DAYS AFTERWARDS JUST IN CASE OF PRURITIS
     Route: 065
  4. JAKAVI [Suspect]
     Active Substance: RUXOLITINIB
     Indication: MYELOFIBROSIS
     Dosage: 5 MG, QD (ADMINISTERED IN THE MORNING)
     Route: 048
     Dates: start: 201303
  5. PLATELETS [Concomitant]
     Active Substance: HUMAN PLATELET, ALLOGENIC
     Indication: PRODUCT USED FOR UNKNOWN INDICATION
     Route: 065

REACTIONS (12)
  - Haemoglobin decreased [Not Recovered/Not Resolved]
  - Haematocrit decreased [Not Recovered/Not Resolved]
  - Red blood cell count decreased [Recovering/Resolving]
  - Lymphopenia [Unknown]
  - Neutropenia [Not Recovered/Not Resolved]
  - Bile duct stone [Recovered/Resolved]
  - Epistaxis [Recovered/Resolved]
  - Thrombocytopenia [Not Recovered/Not Resolved]
  - Leukopenia [Not Recovered/Not Resolved]
  - Blood glucose increased [Unknown]
  - Cholestasis [Recovering/Resolving]
  - Hypokalaemia [Recovered/Resolved]

NARRATIVE: CASE EVENT DATE: 20151119
